FAERS Safety Report 14554315 (Version 1)
Quarter: 2018Q1

REPORT INFORMATION
  Report Type: Spontaneous
  Country: NL (occurrence: NL)
  Receive Date: 20180220
  Receipt Date: 20180220
  Transmission Date: 20180509
  Serious: Yes (Hospitalization)
  Sender: FDA-Public Use
  Company Number: PHHY2018NL028184

PATIENT
  Sex: Female
  Weight: 2 kg

DRUGS (1)
  1. LABETALOL [Suspect]
     Active Substance: LABETALOL\LABETALOL HYDROCHLORIDE
     Indication: HYPERTENSION
     Dosage: 200 MG, TID, 3 DD 200MG ORAAL VANAF 2 DAGEN POSTPARTUM
     Route: 065

REACTIONS (2)
  - Food intolerance [Recovered/Resolved]
  - Exposure via breast milk [Recovered/Resolved]

NARRATIVE: CASE EVENT DATE: 20171115
